FAERS Safety Report 11078955 (Version 1)
Quarter: 2015Q2

REPORT INFORMATION
  Report Type: Report from Study
  Country: JP (occurrence: None)
  Receive Date: 20150428
  Receipt Date: 20150428
  Transmission Date: 20150821
  Serious: Yes (Death, Hospitalization)
  Sender: FDA-Public Use
  Company Number: 2015SGN00621

PATIENT
  Age: 69 Year
  Sex: Male
  Weight: 45.9 kg

DRUGS (7)
  1. CYTARABINE. [Suspect]
     Active Substance: CYTARABINE
     Indication: HODGKIN^S DISEASE
     Route: 050
     Dates: start: 20140718, end: 20140722
  2. ALLELOCK (OLOPATADINE HYDROCHLORIDE) [Concomitant]
  3. ADCETRIS [Suspect]
     Active Substance: BRENTUXIMAB VEDOTIN
     Indication: HODGKIN^S DISEASE
     Route: 041
     Dates: start: 20140704, end: 20140704
  4. ETOPOSIDE. [Suspect]
     Active Substance: ETOPOSIDE
     Indication: HODGKIN^S DISEASE
     Route: 050
     Dates: start: 20140718, end: 20140722
  5. CISPLATIN. [Suspect]
     Active Substance: CISPLATIN
     Indication: HODGKIN^S DISEASE
     Route: 050
     Dates: start: 20140718, end: 20140722
  6. CRAVIT (LEVOFLOXACIN) [Concomitant]
  7. METHYLPREDNISOLONE. [Concomitant]
     Active Substance: METHYLPREDNISOLONE

REACTIONS (7)
  - Febrile neutropenia [None]
  - Neutropenia [None]
  - Dyspnoea [None]
  - Tooth infection [None]
  - Epstein-Barr virus infection [None]
  - Thrombocytopenia [None]
  - Anaemia [None]

NARRATIVE: CASE EVENT DATE: 20140707
